FAERS Safety Report 13769697 (Version 1)
Quarter: 2017Q3

REPORT INFORMATION
  Report Type: Spontaneous
  Country: FI (occurrence: FI)
  Receive Date: 20170719
  Receipt Date: 20170719
  Transmission Date: 20171127
  Serious: Yes (Hospitalization)
  Sender: FDA-Public Use
  Company Number: FI-PFIZER INC-2988207

PATIENT
  Age: 57 Year
  Sex: Female
  Weight: 67 kg

DRUGS (11)
  1. DEXAMETASON /00016001/ [Concomitant]
     Dosage: 7.5 MG, UNK
     Route: 048
     Dates: start: 20150526, end: 20150527
  2. GRANISETRON [Concomitant]
     Active Substance: GRANISETRON
     Indication: NAUSEA
     Dosage: 2 MG, UNK
     Route: 048
     Dates: start: 20150506
  3. DEXAMETASON /00016001/ [Concomitant]
     Indication: NAUSEA
     Dosage: 7.5 MG, UNK
     Route: 048
     Dates: start: 20150506, end: 2015
  4. CAPECITABINE. [Concomitant]
     Active Substance: CAPECITABINE
     Indication: GASTROINTESTINAL CARCINOMA
     Dosage: 500 MG 3+3
     Route: 048
     Dates: start: 20150506, end: 20150519
  5. GRANISETRON [Concomitant]
     Active Substance: GRANISETRON
     Dosage: 2 MG, UNK
     Route: 048
     Dates: start: 20150527
  6. OXALIPLATIN. [Suspect]
     Active Substance: OXALIPLATIN
     Dosage: 220 MG, FREQ: 1 WEEK; INTERVAL: 3
     Route: 042
     Dates: start: 20150527
  7. CAPECITABINE. [Concomitant]
     Active Substance: CAPECITABINE
     Dosage: 500 MG 3+3
     Route: 048
     Dates: start: 20150527, end: 20150609
  8. OXALIPLATIN. [Suspect]
     Active Substance: OXALIPLATIN
     Indication: GASTROINTESTINAL CARCINOMA
     Dosage: 220 MG, FREQ: 1 WEEK; INTERVAL: 3
     Route: 042
     Dates: start: 20150506
  9. OXALIPLATIN. [Suspect]
     Active Substance: OXALIPLATIN
     Dosage: 220 MG, FREQ: 1 WEEK; INTERVAL: 3
     Route: 042
     Dates: start: 20150506
  10. OXALIPLATIN. [Suspect]
     Active Substance: OXALIPLATIN
     Dosage: 220 MG, FREQ: 1 WEEK; INTERVAL: 3
     Route: 042
     Dates: start: 20150527
  11. ZYRTEC [Concomitant]
     Active Substance: CETIRIZINE HYDROCHLORIDE
     Indication: HYPERSENSITIVITY
     Dosage: 10 MG, UNK
     Route: 048
     Dates: start: 20150526, end: 20150527

REACTIONS (10)
  - Malaise [Recovered/Resolved]
  - Muscular weakness [Recovered/Resolved]
  - Hypoaesthesia oral [Recovered/Resolved]
  - Hypoaesthesia [Recovered/Resolved]
  - Paraesthesia oral [Recovered/Resolved]
  - Muscle twitching [Recovered/Resolved]
  - Muscle spasms [Recovered/Resolved]
  - Hypoaesthesia [Recovered/Resolved]
  - Speech disorder [Recovered/Resolved]
  - Hypoaesthesia oral [Recovered/Resolved]

NARRATIVE: CASE EVENT DATE: 20150506
